FAERS Safety Report 8361416-4 (Version None)
Quarter: 2012Q2

REPORT INFORMATION
  Report Type: 
  Country: None (occurrence: None)
  Receive Date: 20120515
  Receipt Date: 20110824
  Transmission Date: 20120825
  Serious: No
  Sender: FDA-Public Use
  Company Number: US-ALEXION-A201101290

PATIENT
  Sex: Male
  Weight: 414.5 kg

DRUGS (9)
  1. SOLIRIS [Suspect]
     Indication: PAROXYSMAL NOCTURNAL HAEMOGLOBINURIA
     Dosage: 600 MG QW X 4
     Route: 042
     Dates: start: 20110505
  2. PREDNISONE TAB [Concomitant]
     Dosage: 20 MG QD
     Route: 048
  3. COUMADIN [Concomitant]
     Dosage: 6 MG X 5 DAYS
     Route: 048
  4. SOLIRIS [Suspect]
     Dosage: 900 MG Q2W
     Route: 042
  5. FOLIC ACID [Concomitant]
     Dosage: 1 MG QD
     Route: 048
  6. PREDNISONE TAB [Concomitant]
     Dosage: 50 MG
     Route: 048
  7. PREDNISONE TAB [Concomitant]
     Dosage: 5 MG
     Route: 048
  8. COUMADIN [Concomitant]
     Dosage: 2 MG
     Route: 048
  9. COUMADIN [Concomitant]
     Dosage: 5 MG X2 DAYS
     Route: 048

REACTIONS (7)
  - FREQUENT BOWEL MOVEMENTS [None]
  - MALAISE [None]
  - BLOOD BILIRUBIN INCREASED [None]
  - HAPTOGLOBIN ABNORMAL [None]
  - RETICULOCYTE COUNT INCREASED [None]
  - HEADACHE [None]
  - LOSS OF LIBIDO [None]
